FAERS Safety Report 5200671-6 (Version None)
Quarter: 2006Q4

REPORT INFORMATION
  Report Type: 
  Country: None (occurrence: None)
  Receive Date: 20061016
  Receipt Date: 20060703
  Transmission Date: 20070319
  Serious: No
  Sender: FDA-Public Use
  Company Number: 2006SP002606

PATIENT
  Age: 50 Year
  Sex: Female
  Weight: 77.1115 kg

DRUGS (6)
  1. LUNESTA [Suspect]
     Indication: INSOMNIA
     Dosage: 3 MG; ORAL
     Route: 048
     Dates: start: 20060601, end: 20060601
  2. VICODIN [Concomitant]
  3. AMLODIPINE [Concomitant]
  4. CRESTOR [Concomitant]
  5. SYNTHROID [Concomitant]
  6. AMOXICILLIN W/CLAVULANATE POTASSIUM LEXAPRO [Concomitant]

REACTIONS (1)
  - DYSGEUSIA [None]
